FAERS Safety Report 16330527 (Version 1)
Quarter: 2019Q2

REPORT INFORMATION
  Report Type: Report from Study
  Country: US (occurrence: US)
  Receive Date: 20190520
  Receipt Date: 20190520
  Transmission Date: 20190711
  Serious: Yes (Other)
  Sender: FDA-Public Use
  Company Number: US-ROCHE-2321315

PATIENT
  Sex: Male

DRUGS (13)
  1. BACTRIM [Concomitant]
     Active Substance: SULFAMETHOXAZOLE\TRIMETHOPRIM
     Indication: OFF LABEL USE
     Dosage: TAKE 1 TAB BY MOUTH DAILY
     Route: 065
  2. LOVENOX [Concomitant]
     Active Substance: ENOXAPARIN SODIUM
     Indication: OFF LABEL USE
  3. RITUXAN [Suspect]
     Active Substance: RITUXIMAB
     Indication: PRODUCT USED FOR UNKNOWN INDICATION
     Route: 065
  4. MORPHINE [Concomitant]
     Active Substance: MORPHINE
     Indication: OFF LABEL USE
  5. METHOTREXATE. [Concomitant]
     Active Substance: METHOTREXATE
     Indication: OFF LABEL USE
  6. LEUCOVORIN [FOLINIC ACID] [Concomitant]
     Active Substance: LEUCOVORIN
     Indication: OFF LABEL USE
  7. TAMSULOSIN [Concomitant]
     Active Substance: TAMSULOSIN
     Indication: OFF LABEL USE
  8. LEVOTHYROXINE. [Concomitant]
     Active Substance: LEVOTHYROXINE
     Indication: OFF LABEL USE
     Dosage: 75MCG BY MOUTH DAILY
     Route: 065
  9. CELLCEPT [Suspect]
     Active Substance: MYCOPHENOLATE MOFETIL\MYCOPHENOLATE MOFETIL HYDROCHLORIDE
     Indication: GRANULOMATOSIS WITH POLYANGIITIS
     Route: 048
  10. WARFARIN [Concomitant]
     Active Substance: WARFARIN
     Indication: OFF LABEL USE
  11. RITUXAN [Suspect]
     Active Substance: RITUXIMAB
     Indication: OFF LABEL USE
  12. CELLCEPT [Suspect]
     Active Substance: MYCOPHENOLATE MOFETIL\MYCOPHENOLATE MOFETIL HYDROCHLORIDE
     Indication: OFF LABEL USE
  13. PRAVASTATIN. [Concomitant]
     Active Substance: PRAVASTATIN
     Indication: OFF LABEL USE
     Dosage: 20MG  BY MOUTH DAILY
     Route: 065

REACTIONS (22)
  - Paralysis [Unknown]
  - Dysphagia [Unknown]
  - Paraesthesia [Unknown]
  - Dyspnoea [Unknown]
  - Weight increased [Unknown]
  - Intermittent claudication [Unknown]
  - Arthritis [Unknown]
  - Vertigo [Unknown]
  - Abdominal discomfort [Unknown]
  - Off label use [Unknown]
  - Intentional product use issue [Unknown]
  - Impaired healing [Unknown]
  - Increased tendency to bruise [Unknown]
  - Hyperhidrosis [Unknown]
  - Odynophagia [Unknown]
  - Nail disorder [Unknown]
  - Hemiparesis [Unknown]
  - Urinary retention [Unknown]
  - Fatigue [Unknown]
  - Tinnitus [Unknown]
  - Wheezing [Unknown]
  - Tendonitis [Unknown]
